FAERS Safety Report 5819326-X (Version None)
Quarter: 2008Q3

REPORT INFORMATION
  Report Type: 
  Country: None (occurrence: None)
  Receive Date: 20080723
  Receipt Date: 20080711
  Transmission Date: 20090109
  Serious: No
  Sender: FDA-Public Use
  Company Number: US-MERCK-0807USA02975B1

PATIENT

DRUGS (4)
  1. SINGULAIR [Suspect]
     Route: 064
     Dates: start: 20030401
  2. CLINDAMYCIN [Concomitant]
     Route: 064
     Dates: start: 20020918
  3. ERYTHROMYCIN [Concomitant]
     Route: 064
     Dates: start: 20020918
  4. VITAMINS (UNSPECIFIED) [Concomitant]
     Route: 064

REACTIONS (1)
  - BRADYCARDIA FOETAL [None]
